FAERS Safety Report 25226698 (Version 1)
Quarter: 2025Q2

REPORT INFORMATION
  Report Type: Spontaneous
  Country: US (occurrence: US)
  Receive Date: 20250422
  Receipt Date: 20250422
  Transmission Date: 20250716
  Serious: No
  Sender: EISAI
  Company Number: US-Eisai-EC-2025-187298

PATIENT
  Sex: Male

DRUGS (2)
  1. LENVIMA [Suspect]
     Active Substance: LENVATINIB
     Indication: Renal cell carcinoma
     Dates: start: 20250313, end: 202503
  2. KEYTRUDA [Suspect]
     Active Substance: PEMBROLIZUMAB
     Indication: Renal cell carcinoma
     Dates: start: 20250313, end: 20250313

REACTIONS (1)
  - Swelling of eyelid [Not Recovered/Not Resolved]

NARRATIVE: CASE EVENT DATE: 20250320
